FAERS Safety Report 15332745 (Version 1)
Quarter: 2018Q3

REPORT INFORMATION
  Report Type: Spontaneous
  Country: US (occurrence: US)
  Receive Date: 20180830
  Receipt Date: 20180830
  Transmission Date: 20181010
  Serious: No
  Sender: FDA-Public Use
  Company Number: US-AMGEN-USASP2018118040

PATIENT
  Sex: Female

DRUGS (6)
  1. SULFASALAZINE DELAYED?RELEASE [Concomitant]
     Active Substance: SULFASALAZINE
     Dosage: 500 MG, UNK
  2. HYDROXYCHLOROQUINE [Concomitant]
     Active Substance: HYDROXYCHLOROQUINE
     Dosage: 200 MG, UNK
  3. PREDNISONE. [Concomitant]
     Active Substance: PREDNISONE
     Dosage: 2.5 MG, UNK
  4. ENBREL [Suspect]
     Active Substance: ETANERCEPT
     Indication: RHEUMATOID ARTHRITIS
     Dosage: 25 MG, 2 TIMES/WK
     Route: 058
  5. ENBREL [Suspect]
     Active Substance: ETANERCEPT
     Dosage: DOES NOT TAKE MEDICINE AS FREQUENTLY AS PRESCRIBED
     Route: 058
  6. IBUPROFEN. [Concomitant]
     Active Substance: IBUPROFEN
     Dosage: 800 MG, UNK

REACTIONS (3)
  - Injection site pruritus [Not Recovered/Not Resolved]
  - Intentional product misuse [Unknown]
  - Injection site erythema [Not Recovered/Not Resolved]
